FAERS Safety Report 9485894 (Version 2)
Quarter: 2013Q3

REPORT INFORMATION
  Report Type: Spontaneous
  Country: US (occurrence: US)
  Receive Date: 20130829
  Receipt Date: 20130903
  Transmission Date: 20140515
  Serious: Yes (Other)
  Sender: FDA-Public Use
  Company Number: US-JNJFOC-20130812693

PATIENT
  Age: 82 Year
  Sex: Male

DRUGS (11)
  1. XARELTO [Suspect]
     Indication: DEEP VEIN THROMBOSIS
     Route: 048
     Dates: end: 20130816
  2. ASPIR-81 [Suspect]
     Indication: PRODUCT USED FOR UNKNOWN INDICATION
     Route: 048
  3. LEXAPRO [Concomitant]
     Indication: PRODUCT USED FOR UNKNOWN INDICATION
     Route: 048
  4. ARCAPTA [Concomitant]
     Indication: PRODUCT USED FOR UNKNOWN INDICATION
     Route: 065
  5. RAPAFLO [Concomitant]
     Indication: PRODUCT USED FOR UNKNOWN INDICATION
     Route: 065
  6. ALLOPURINOL [Concomitant]
     Indication: PRODUCT USED FOR UNKNOWN INDICATION
     Route: 048
  7. XANAX [Concomitant]
     Indication: ANXIETY
     Route: 048
  8. BYSTOLIC [Concomitant]
     Indication: HYPERTENSION
     Route: 048
  9. GLIPIZIDE [Concomitant]
     Indication: DIABETES MELLITUS
     Dosage: 2.5MG 2 TABS ONE TIME A DAY
     Route: 048
  10. ADVAIR DISKUS [Concomitant]
     Indication: ASTHMA
     Dosage: 250/50 ONE PUFF EVERY 12 HOURS
     Route: 065
  11. SYNTHROID [Concomitant]
     Indication: PRODUCT USED FOR UNKNOWN INDICATION
     Route: 048

REACTIONS (4)
  - Haematuria [Recovered/Resolved]
  - Deep vein thrombosis [Unknown]
  - Dyspnoea [Unknown]
  - Fatigue [Unknown]
